FAERS Safety Report 6639904-8 (Version None)
Quarter: 2010Q1

REPORT INFORMATION
  Report Type: 
  Country: None (occurrence: None)
  Receive Date: 20100318
  Receipt Date: 20100309
  Transmission Date: 20100710
  Serious: Yes (Life-Threatening, Other)
  Sender: FDA-Public Use
  Company Number: CN-ASTRAZENECA-2010SE10290

PATIENT

DRUGS (1)
  1. SEROQUEL [Suspect]
     Indication: AFFECT LABILITY
     Route: 048

REACTIONS (4)
  - DYSPHAGIA [None]
  - DYSPNOEA [None]
  - LARYNGOSPASM [None]
  - OFF LABEL USE [None]
